FAERS Safety Report 6123299-2 (Version None)
Quarter: 2009Q1

REPORT INFORMATION
  Report Type: 
  Country: None (occurrence: None)
  Receive Date: 20090318
  Receipt Date: 20090313
  Transmission Date: 20090719
  Serious: Yes (Life-Threatening)
  Sender: FDA-Public Use
  Company Number: FR-ROCHE-621740

PATIENT
  Sex: Female

DRUGS (5)
  1. ROCEPHIN [Suspect]
     Dosage: FREQUENCY REPORTED AS ONCE
     Route: 065
     Dates: start: 20081102, end: 20081102
  2. MIANSERINE [Concomitant]
  3. TERALITHE [Concomitant]
  4. LEXOMIL [Concomitant]
  5. NEXIUM [Concomitant]

REACTIONS (6)
  - ANAPHYLACTIC SHOCK [None]
  - ERYTHEMA [None]
  - GASTROINTESTINAL NECROSIS [None]
  - HYPOTENSION [None]
  - SHOCK [None]
  - TROPONIN INCREASED [None]
